FAERS Safety Report 6146469-6 (Version None)
Quarter: 2009Q2

REPORT INFORMATION
  Report Type: 
  Country: None (occurrence: None)
  Receive Date: 20090407
  Receipt Date: 20090331
  Transmission Date: 20091009
  Serious: Yes (Death)
  Sender: FDA-Public Use
  Company Number: A0777165A

PATIENT
  Sex: Male
  Weight: 95 kg

DRUGS (5)
  1. SERETIDE [Suspect]
     Dosage: 1PUFF PER DAY
     Dates: start: 20090219, end: 20090319
  2. PREDNISOLONE [Concomitant]
     Dates: start: 20090131, end: 20090319
  3. ENALAPRIL [Concomitant]
     Dates: start: 20090103, end: 20090319
  4. OMEPRAZOLE [Concomitant]
     Dates: start: 19990101, end: 20090319
  5. DIGOXIN [Concomitant]
     Dates: start: 20090131, end: 20090319

REACTIONS (1)
  - RESPIRATORY FAILURE [None]
